FAERS Safety Report 9759893 (Version 2)
Quarter: 2013Q4

REPORT INFORMATION
  Report Type: Spontaneous
  Country: BR (occurrence: BR)
  Receive Date: 20131216
  Receipt Date: 20131216
  Transmission Date: 20140711
  Serious: Yes (Other)
  Sender: FDA-Public Use
  Company Number: BR-PFIZER INC-2013329938

PATIENT
  Sex: Male

DRUGS (2)
  1. CELEBRA [Suspect]
  2. TYLEX [Suspect]

REACTIONS (5)
  - Chondropathy [Unknown]
  - Activities of daily living impaired [Not Recovered/Not Resolved]
  - Local swelling [Not Recovered/Not Resolved]
  - Drug ineffective [Unknown]
  - Drug effect decreased [Unknown]
